FAERS Safety Report 4443287-1 (Version None)
Quarter: 2004Q3

REPORT INFORMATION
  Report Type: 
  Country: None (occurrence: None)
  Receive Date: 20040907
  Receipt Date: 20040907
  Transmission Date: 20050211
  Serious: Yes (Other)
  Sender: FDA-Public Use
  Company Number: None

PATIENT
  Sex: Female

DRUGS (1)
  1. DANAZOL [Suspect]
     Dosage: 200MG  QD  VAGINAL
     Route: 067
     Dates: start: 20040703, end: 20040903

REACTIONS (2)
  - PHARMACEUTICAL PRODUCT COMPLAINT [None]
  - VULVOVAGINAL DISCOMFORT [None]
